FAERS Safety Report 7253176-5 (Version None)
Quarter: 2011Q1

REPORT INFORMATION
  Report Type: 
  Country: None (occurrence: None)
  Receive Date: 20110129
  Receipt Date: 20100319
  Transmission Date: 20110831
  Serious: No
  Sender: FDA-Public Use
  Company Number: US-ABBOTT-10P-163-0623071-00

PATIENT
  Sex: Female
  Weight: 90.8 kg

DRUGS (5)
  1. IBUPROFEN [Concomitant]
     Indication: PRODUCT USED FOR UNKNOWN INDICATION
  2. LISINOPRIL [Concomitant]
     Indication: HYPERTENSION
     Dates: start: 20090501
  3. HUMIRA [Suspect]
     Indication: PSORIASIS
     Route: 058
     Dates: start: 20090501
  4. METFORMIN [Concomitant]
     Indication: DIABETES MELLITUS
     Dates: start: 20090501
  5. PM PAIN RELIEVER [Concomitant]
     Indication: PRODUCT USED FOR UNKNOWN INDICATION

REACTIONS (3)
  - JOINT SWELLING [None]
  - DRUG INEFFECTIVE [None]
  - MOBILITY DECREASED [None]
